FAERS Safety Report 6609230-1 (Version None)
Quarter: 2010Q1

REPORT INFORMATION
  Report Type: 
  Country: None (occurrence: None)
  Receive Date: 20100222
  Receipt Date: 20100210
  Transmission Date: 20100710
  Serious: Yes (Hospitalization)
  Sender: FDA-Public Use
  Company Number: 2009AC000455

PATIENT
  Age: 76 Year
  Sex: Male

DRUGS (30)
  1. DIGOXIN [Suspect]
     Dosage: 0.125 MG; PO
     Route: 048
     Dates: start: 19870101
  2. DIGOXIN [Suspect]
     Dosage: PO
     Route: 048
     Dates: start: 20030207, end: 20080523
  3. METOPROLOL TARTRATE [Concomitant]
  4. VITAMIN B-12 [Concomitant]
  5. COLCHICINE [Concomitant]
  6. COUMADIN [Concomitant]
  7. ALLOPURINOL [Concomitant]
  8. FOLIC ACID [Concomitant]
  9. LASIX [Concomitant]
  10. GLYBURIDE [Concomitant]
  11. COUMADIN [Concomitant]
  12. GLYBURIDE [Concomitant]
  13. METFORMIN [Concomitant]
  14. FINASTERIDE [Concomitant]
  15. FUROSEMIDE [Concomitant]
  16. LOVASTATIN [Concomitant]
  17. METOPROLOL TARTRATE [Concomitant]
  18. ENALAPRIL MALEATE [Concomitant]
  19. FLEXERIL [Concomitant]
  20. NASALCROM [Concomitant]
  21. VITAMIN B-12 [Concomitant]
  22. ALDACTONE [Concomitant]
  23. NITROGLYCERIN [Concomitant]
  24. METOPROLOL TARTRATE [Concomitant]
  25. DOXAZOSIN MESYLATE [Concomitant]
  26. POTASSIUM [Concomitant]
  27. ATENOLOL [Concomitant]
  28. ISOSORBIDE MONONITRATE [Concomitant]
  29. IPRATROPIUM NASAL SPRAY [Concomitant]
  30. SPIRONOLACTONE [Concomitant]

REACTIONS (30)
  - ANXIETY [None]
  - AORTIC ANEURYSM [None]
  - ARTERIOSCLEROSIS [None]
  - ARTERIOSCLEROSIS CORONARY ARTERY [None]
  - ARTHROPATHY [None]
  - ATRIAL FIBRILLATION [None]
  - BACK PAIN [None]
  - BENIGN PROSTATIC HYPERPLASIA [None]
  - CARDIOACTIVE DRUG LEVEL INCREASED [None]
  - CARDIOMEGALY [None]
  - CHOLELITHIASIS [None]
  - CORONARY ARTERY OCCLUSION [None]
  - DIPLOPIA [None]
  - DIZZINESS [None]
  - DYSPNOEA [None]
  - DYSPNOEA EXERTIONAL [None]
  - ECONOMIC PROBLEM [None]
  - ELECTROCARDIOGRAM POOR R-WAVE PROGRESSION [None]
  - EMOTIONAL DISORDER [None]
  - EYELID PTOSIS [None]
  - HEADACHE [None]
  - HIATUS HERNIA [None]
  - MITRAL VALVE INCOMPETENCE [None]
  - MULTIPLE INJURIES [None]
  - RADICULAR PAIN [None]
  - RENAL CYST [None]
  - RENAL IMPAIRMENT [None]
  - RESPIRATORY TRACT INFECTION [None]
  - SURGERY [None]
  - URINARY TRACT OBSTRUCTION [None]
